FAERS Safety Report 10340153 (Version 2)
Quarter: 2014Q3

REPORT INFORMATION
  Report Type: Spontaneous
  Country: US (occurrence: US)
  Receive Date: 20140724
  Receipt Date: 20140724
  Transmission Date: 20150326
  Serious: Yes (Hospitalization, Other)
  Sender: FDA-Public Use
  Company Number: US-009507513-2010SP042284

PATIENT
  Sex: Female
  Weight: 92.8 kg

DRUGS (4)
  1. NUVARING [Suspect]
     Active Substance: ETHINYL ESTRADIOL\ETONOGESTREL
     Indication: CONTRACEPTION
     Route: 067
     Dates: start: 2005, end: 20070819
  2. PROZAC [Concomitant]
     Active Substance: FLUOXETINE HYDROCHLORIDE
     Indication: HOT FLUSH
  3. COUGH, COLD, AND FLU THERAPIES (UNSPECIFIED) [Suspect]
     Active Substance: UNSPECIFIED INGREDIENT
     Indication: RHINITIS
  4. LOPRESSOR [Suspect]
     Active Substance: METOPROLOL TARTRATE
     Indication: PRODUCT USED FOR UNKNOWN INDICATION

REACTIONS (21)
  - Arteriosclerosis coronary artery [Unknown]
  - Adverse event [Unknown]
  - Tremor [Unknown]
  - Asthma [Unknown]
  - Deep vein thrombosis [Unknown]
  - Phlebitis [Unknown]
  - Sinusitis [Not Recovered/Not Resolved]
  - Cystitis [Unknown]
  - Asthma exercise induced [Unknown]
  - Endometriosis [Unknown]
  - Rhinitis [Not Recovered/Not Resolved]
  - Intervertebral disc disorder [Unknown]
  - Conjunctivitis [Unknown]
  - Palpitations [Unknown]
  - Hot flush [Unknown]
  - Coagulopathy [Unknown]
  - Headache [Unknown]
  - Gastrooesophageal reflux disease [Unknown]
  - Tachycardia [Unknown]
  - Neck pain [Unknown]
  - Upper respiratory tract infection [Unknown]

NARRATIVE: CASE EVENT DATE: 2005
